FAERS Safety Report 11792701 (Version 1)
Quarter: 2015Q4

REPORT INFORMATION
  Report Type: Spontaneous
  Country: US (occurrence: None)
  Receive Date: 20151130
  Receipt Date: 20151130
  Transmission Date: 20160305
  Serious: Yes (Death, Hospitalization, Other)
  Sender: FDA-Public Use
  Company Number: 2015US-106763

PATIENT
  Age: 65 Year
  Sex: Male

DRUGS (1)
  1. PREDNISONE (PREDNISONE) UNKNOWN [Suspect]
     Active Substance: PREDNISONE
     Indication: ORGANISING PNEUMONIA

REACTIONS (3)
  - Acute hepatic failure [None]
  - Hepatitis B [None]
  - Non-small cell lung cancer [None]
